FAERS Safety Report 7207530-8 (Version None)
Quarter: 2010Q4

REPORT INFORMATION
  Report Type: 
  Country: None (occurrence: None)
  Receive Date: 20101217
  Receipt Date: 20101201
  Transmission Date: 20110411
  Serious: Yes (Hospitalization, Other)
  Sender: FDA-Public Use
  Company Number: DSJ-2010-17599

PATIENT
  Age: 8 Decade
  Sex: Female

DRUGS (6)
  1. BENICAR [Suspect]
     Indication: HYPERTENSION
     Dosage: 40 MG (40 MG, 1 IN 1 D), PER ORAL
     Route: 048
     Dates: start: 20070408, end: 20100914
  2. METFORMIN/GLIBENCLAMIDE [Suspect]
     Indication: DIABETES MELLITUS
     Dosage: 500 MG/2.5 MG, PER ORAL,
     Dates: start: 20070101
  3. CLOPIDOGREL [Suspect]
     Indication: PRODUCT USED FOR UNKNOWN INDICATION
     Dosage: 75 MG, PER ORAL
     Route: 048
     Dates: start: 20070101
  4. SIMVASTATIN [Concomitant]
  5. GLICLAZIDE [Concomitant]
  6. METOPROLOL [Concomitant]

REACTIONS (7)
  - CONDITION AGGRAVATED [None]
  - DIABETES MELLITUS [None]
  - DRUG INEFFECTIVE [None]
  - INFARCTION [None]
  - MALAISE [None]
  - SOMNOLENCE [None]
  - WEIGHT INCREASED [None]
